FAERS Safety Report 15411142 (Version 1)
Quarter: 2018Q3

REPORT INFORMATION
  Report Type: Spontaneous
  Country: US (occurrence: US)
  Receive Date: 20180919
  Receipt Date: 20180919
  Transmission Date: 20181010
  Serious: Yes (Other)
  Sender: FDA-Public Use
  Company Number: None

PATIENT

DRUGS (1)
  1. FUROSEMIDE INJECTION, 100MG/10ML [Suspect]
     Active Substance: FUROSEMIDE

REACTIONS (3)
  - Accidental exposure to product [None]
  - Device breakage [None]
  - Pollakiuria [None]

NARRATIVE: CASE EVENT DATE: 201809
